FAERS Safety Report 7395369-2 (Version None)
Quarter: 2011Q2

REPORT INFORMATION
  Report Type: 
  Country: None (occurrence: None)
  Receive Date: 20110405
  Receipt Date: 20110330
  Transmission Date: 20111010
  Serious: Yes (Hospitalization)
  Sender: FDA-Public Use
  Company Number: US-ABBOTT-11P-163-0715586-00

PATIENT
  Sex: Female
  Weight: 102.15 kg

DRUGS (2)
  1. IRON [Concomitant]
     Indication: ANAEMIA
  2. HUMIRA [Suspect]
     Indication: CROHN'S DISEASE
     Dates: start: 20100801, end: 20110113

REACTIONS (8)
  - ASTHENIA [None]
  - RASH PUSTULAR [None]
  - ARTHRALGIA [None]
  - DECREASED APPETITE [None]
  - DIARRHOEA [None]
  - BONE PAIN [None]
  - ANAEMIA [None]
  - PYREXIA [None]
